FAERS Safety Report 5760226-1 (Version None)
Quarter: 2008Q2

REPORT INFORMATION
  Report Type: 
  Country: None (occurrence: None)
  Receive Date: 20080605
  Receipt Date: 20080522
  Transmission Date: 20081010
  Serious: Yes (Death)
  Sender: FDA-Public Use
  Company Number: BE-GENENTECH-261457

PATIENT
  Age: 85 Year
  Sex: Female

DRUGS (3)
  1. LUCENTIS [Suspect]
     Indication: DRUG USE FOR UNKNOWN INDICATION
  2. CARDIOASPIRINE [Concomitant]
     Indication: DRUG USE FOR UNKNOWN INDICATION
  3. ZESTRIL [Concomitant]
     Indication: DRUG USE FOR UNKNOWN INDICATION

REACTIONS (1)
  - DEATH [None]
